FAERS Safety Report 7196882-3 (Version None)
Quarter: 2010Q4

REPORT INFORMATION
  Report Type: 
  Country: None (occurrence: None)
  Receive Date: 20101223
  Receipt Date: 20101213
  Transmission Date: 20110411
  Serious: Yes (Other)
  Sender: FDA-Public Use
  Company Number: US-AMGEN-KDL442042

PATIENT

DRUGS (10)
  1. ENBREL [Suspect]
     Indication: RHEUMATOID ARTHRITIS
     Dosage: 50 MG, QWK
     Route: 058
     Dates: start: 20020101, end: 20100301
  2. METHOTREXATE [Concomitant]
     Dosage: UNK UNK, UNK
  3. PREDNISONE [Concomitant]
     Dosage: UNK UNK, UNK
  4. ATORVASTATIN CALCIUM [Concomitant]
     Dosage: UNK UNK, UNK
  5. TRANDOLAPRIL [Concomitant]
     Dosage: UNK UNK, UNK
  6. GLIPIZIDE [Concomitant]
     Dosage: UNK UNK, UNK
  7. CANDESARTAN CILEXETIL [Concomitant]
     Dosage: UNK UNK, UNK
  8. TOPIRAMATE [Concomitant]
     Dosage: UNK UNK, UNK
  9. ESOMEPRAZOLE MAGNESIUM [Concomitant]
     Dosage: UNK UNK, UNK
  10. TIMOLOL MALEATE [Concomitant]
     Dosage: UNK UNK, UNK

REACTIONS (1)
  - LYMPHOMA [None]
